FAERS Safety Report 13665753 (Version 2)
Quarter: 2019Q2

REPORT INFORMATION
  Report Type: Report from Study
  Country: US (occurrence: US)
  Receive Date: 20170619
  Receipt Date: 20190613
  Transmission Date: 20190711
  Serious: Yes (Hospitalization, Other)
  Sender: FDA-Public Use
  Company Number: US-SA-2017SA106805

PATIENT
  Age: 75 Year
  Sex: Male

DRUGS (3)
  1. INSULIN GLARGINE [Suspect]
     Active Substance: INSULIN GLARGINE
     Dosage: 50 U, BID
     Route: 051
  2. INSULIN GLARGINE [Suspect]
     Active Substance: INSULIN GLARGINE
     Dosage: DOSE- 75-90 UNITS DEPENDING UPON SUGAR FREQUENCY- WHEN CHECKED SUGAR
     Route: 051
  3. INSULIN GLARGINE [Suspect]
     Active Substance: INSULIN GLARGINE
     Indication: TYPE 2 DIABETES MELLITUS
     Dosage: 60 U, QD
     Route: 058

REACTIONS (13)
  - Cerebrovascular accident [Not Recovered/Not Resolved]
  - Glycosylated haemoglobin increased [Not Recovered/Not Resolved]
  - Inappropriate schedule of product administration [Unknown]
  - Seizure [Unknown]
  - Blood glucose increased [Not Recovered/Not Resolved]
  - Fall [Unknown]
  - Tunnel vision [Unknown]
  - Gallbladder disorder [Unknown]
  - Post procedural infection [Unknown]
  - Loss of personal independence in daily activities [Not Recovered/Not Resolved]
  - Product use issue [Unknown]
  - Rib fracture [Not Recovered/Not Resolved]
  - Balance disorder [Unknown]

NARRATIVE: CASE EVENT DATE: 201511
